FAERS Safety Report 13602073 (Version 3)
Quarter: 2018Q1

REPORT INFORMATION
  Report Type: Spontaneous
  Country: US (occurrence: US)
  Receive Date: 20170601
  Receipt Date: 20180313
  Transmission Date: 20180508
  Serious: Yes (Other)
  Sender: FDA-Public Use
  Company Number: US-UCBSA-2017020726

PATIENT
  Sex: Male

DRUGS (3)
  1. LAMICTAL [Concomitant]
     Active Substance: LAMOTRIGINE
     Indication: PRODUCT USED FOR UNKNOWN INDICATION
     Dosage: DOSE: 600 MG
  2. BRIVIACT [Suspect]
     Active Substance: BRIVARACETAM
     Dosage: DOSE CHANGED
  3. BRIVIACT [Suspect]
     Active Substance: BRIVARACETAM
     Indication: EPILEPSY
     Dosage: 100 MG, 2X/DAY (BID)
     Dates: start: 20130501

REACTIONS (8)
  - Fatigue [Unknown]
  - Pregnancy of partner [Unknown]
  - Vomiting [Unknown]
  - Vision blurred [Unknown]
  - Generalised tonic-clonic seizure [Recovered/Resolved]
  - Partial seizures [Unknown]
  - Accidental overdose [Unknown]
  - Thinking abnormal [Recovered/Resolved]

NARRATIVE: CASE EVENT DATE: 2013
